FAERS Safety Report 10063565 (Version 1)
Quarter: 2014Q2

REPORT INFORMATION
  Report Type: Spontaneous
  Country: BR (occurrence: BR)
  Receive Date: 20140407
  Receipt Date: 20140407
  Transmission Date: 20141212
  Serious: Yes (Other)
  Sender: FDA-Public Use
  Company Number: PHHY2014BR039034

PATIENT
  Age: 2 Year
  Sex: Male

DRUGS (1)
  1. AMOXICILLIN SODIUM+POTASSIUM CLAVULANATE SANDOZ [Suspect]
     Indication: BRONCHOPNEUMONIA
     Dosage: 2.5 ML, Q12H
     Route: 048
     Dates: start: 20140324

REACTIONS (3)
  - Diarrhoea [Not Recovered/Not Resolved]
  - Drug administration error [Unknown]
  - Incorrect product storage [Unknown]
